FAERS Safety Report 20224665 (Version 1)
Quarter: 2021Q4

REPORT INFORMATION
  Report Type: Spontaneous
  Country: GB (occurrence: GB)
  Receive Date: 20211223
  Receipt Date: 20211223
  Transmission Date: 20220304
  Serious: Yes (Other)
  Sender: FDA-Public Use
  Company Number: None

PATIENT
  Age: 30 Year
  Sex: Female
  Weight: 70 kg

DRUGS (2)
  1. FRAGMIN [Suspect]
     Active Substance: DALTEPARIN SODIUM
     Indication: Ectopic pregnancy
     Dosage: 5000 IU
     Route: 058
     Dates: start: 20211022, end: 20211204
  2. ENOXAPARIN SODIUM [Suspect]
     Active Substance: ENOXAPARIN SODIUM
     Indication: Complication of pregnancy
     Dosage: 40 MG
     Route: 058
     Dates: start: 20211129, end: 20211204

REACTIONS (5)
  - Urticaria [Recovering/Resolving]
  - Maternal exposure during pregnancy [Unknown]
  - Injection site discolouration [Unknown]
  - Injection site exfoliation [Unknown]
  - Off label use [Unknown]

NARRATIVE: CASE EVENT DATE: 20211022
